FAERS Safety Report 18418801 (Version 1)
Quarter: 2020Q4

REPORT INFORMATION
  Report Type: Other
  Country: CN (occurrence: CN)
  Receive Date: 20201023
  Receipt Date: 20201023
  Transmission Date: 20210114
  Serious: Yes (Other)
  Sender: FDA-Public Use
  Company Number: CN-ROCHE-2699109

PATIENT

DRUGS (3)
  1. ACTILYSE [Suspect]
     Active Substance: ALTEPLASE
     Indication: CEREBRAL INFARCTION
     Dosage: 0.9 MG/KG (MAXIMUM DOSE OF 90 MG), AN INITIAL TOTAL DOSE OF 10% INTRAVENOUS INFUSION, FOLLOWED BY CO
     Route: 042
  2. SODIUM CHLORIDE;UBIDECARENONE [Concomitant]
     Indication: DRUG THERAPY
     Route: 042
  3. KALLIDINOGENASE [Concomitant]
     Active Substance: KALLIDINOGENASE
     Indication: CEREBRAL INFARCTION
     Dosage: 0.15PAN UNIT/TIME
     Route: 042

REACTIONS (2)
  - No adverse event [Unknown]
  - Drug ineffective [Unknown]
